FAERS Safety Report 9547962 (Version 1)
Quarter: 2013Q2

REPORT INFORMATION
  Report Type: Spontaneous
  Country: US (occurrence: None)
  Receive Date: 20130524
  Receipt Date: 20130524
  Transmission Date: 20140414
  Serious: No
  Sender: FDA-Public Use
  Company Number: PHEH2013US004873

PATIENT
  Age: 41 Year
  Sex: Female

DRUGS (1)
  1. GILENYA (FINGOLIMOD) CAPSULE, 0.5MG [Suspect]
     Indication: MULTIPLE SCLEROSIS
     Route: 048

REACTIONS (8)
  - Peroneal nerve palsy [None]
  - Disturbance in attention [None]
  - Stress [None]
  - Inappropriate affect [None]
  - Pain in extremity [None]
  - Muscular weakness [None]
  - Gait disturbance [None]
  - Back pain [None]
